FAERS Safety Report 20948429 (Version 1)
Quarter: 2022Q2

REPORT INFORMATION
  Report Type: Other
  Country: US (occurrence: None)
  Receive Date: 20220612
  Receipt Date: 20220612
  Transmission Date: 20220721
  Serious: Yes (Hospitalization)
  Sender: FDA-Public Use
  Company Number: US-ROCHE-3113163

PATIENT
  Age: 50 Year
  Sex: Female
  Weight: 128.03 kg

DRUGS (16)
  1. OCREVUS [Suspect]
     Active Substance: OCRELIZUMAB
     Indication: Secondary progressive multiple sclerosis
     Route: 042
     Dates: start: 20190218
  2. MELATONIN [Concomitant]
     Active Substance: MELATONIN
  3. VENLAFAXINE [Concomitant]
     Active Substance: VENLAFAXINE HYDROCHLORIDE
  4. NITROFURANTOIN [Concomitant]
     Active Substance: NITROFURANTOIN
  5. GEMTESA [Concomitant]
     Active Substance: VIBEGRON
  6. BUPROPION [Concomitant]
     Active Substance: BUPROPION
  7. GABAPENTIN [Concomitant]
     Active Substance: GABAPENTIN
  8. OXYBUTYNIN [Concomitant]
     Active Substance: OXYBUTYNIN
  9. ESZOPICLONE [Concomitant]
     Active Substance: ESZOPICLONE
  10. BIOTIN [Concomitant]
     Active Substance: BIOTIN
  11. ASCORBIC ACID\VITAMIN B COMPLEX [Concomitant]
     Active Substance: ASCORBIC ACID\VITAMIN B COMPLEX
  12. FISH OIL [Concomitant]
     Active Substance: FISH OIL
  13. CALCIUM MAGNESIUM ZINC VITAMIN D3 [Concomitant]
  14. VITAMIN D3 [Concomitant]
     Active Substance: CHOLECALCIFEROL
  15. VITAMIN C [Concomitant]
     Active Substance: ASCORBIC ACID
  16. QUERCETIN [Concomitant]
     Active Substance: QUERCETIN

REACTIONS (3)
  - COVID-19 [Recovered/Resolved]
  - Limb mass [Recovered/Resolved]
  - Contusion [Not Recovered/Not Resolved]

NARRATIVE: CASE EVENT DATE: 20211115
